FAERS Safety Report 15607522 (Version 2)
Quarter: 2018Q4

REPORT INFORMATION
  Report Type: Spontaneous
  Country: US (occurrence: US)
  Receive Date: 20181112
  Receipt Date: 20181130
  Transmission Date: 20190205
  Serious: Yes (Other)
  Sender: FDA-Public Use
  Company Number: US-PFIZER INC-2018454068

PATIENT
  Sex: Female

DRUGS (1)
  1. LYRICA [Suspect]
     Active Substance: PREGABALIN
     Indication: PAIN MANAGEMENT
     Dosage: UNK

REACTIONS (9)
  - Transient ischaemic attack [Unknown]
  - Movement disorder [Unknown]
  - Panic attack [Unknown]
  - Cerebrovascular accident [Unknown]
  - Thinking abnormal [Unknown]
  - Mood swings [Unknown]
  - Speech disorder [Unknown]
  - Amnesia [Unknown]
  - Anger [Unknown]
